FAERS Safety Report 9949208 (Version 6)
Quarter: 2014Q2

REPORT INFORMATION
  Report Type: Report from Study
  Country: BE (occurrence: BE)
  Receive Date: 20140304
  Receipt Date: 20140520
  Transmission Date: 20141212
  Serious: Yes (Death, Life-Threatening, Hospitalization)
  Sender: FDA-Public Use
  Company Number: BE-ROCHE-1336422

PATIENT
  Age: 56 Year
  Sex: Female
  Weight: 87 kg

DRUGS (6)
  1. OBINUTUZUMAB [Suspect]
     Indication: DIFFUSE LARGE B-CELL LYMPHOMA
     Dosage: DATE OF LAST DOSE PRIOR TO SAE: 10/JAN/2014
     Route: 065
     Dates: start: 20140110, end: 20140116
  2. VINDESINE [Suspect]
     Indication: LYMPHOID TISSUE HYPERPLASIA
     Route: 065
     Dates: start: 20140110, end: 20140117
  3. BLEOMYCIN [Suspect]
     Indication: LYMPHOID TISSUE HYPERPLASIA
     Route: 065
     Dates: start: 20140110, end: 20140117
  4. PREDNISONE [Suspect]
     Indication: LYMPHOID TISSUE HYPERPLASIA
     Route: 065
     Dates: start: 20140110, end: 20140117
  5. CYCLOPHOSPHAMIDE [Suspect]
     Indication: LYMPHOID TISSUE HYPERPLASIA
     Route: 065
     Dates: start: 20140110, end: 20140117
  6. DOXORUBICIN [Suspect]
     Indication: LYMPHOID TISSUE HYPERPLASIA
     Route: 065
     Dates: start: 20140110, end: 20140117

REACTIONS (3)
  - Acute respiratory distress syndrome [Fatal]
  - Septic shock [Recovered/Resolved]
  - Neutropenic colitis [Recovered/Resolved]
